FAERS Safety Report 6457491-4 (Version None)
Quarter: 2009Q4

REPORT INFORMATION
  Report Type: 
  Country: None (occurrence: None)
  Receive Date: 20091125
  Receipt Date: 20091112
  Transmission Date: 20100525
  Serious: Yes (Hospitalization)
  Sender: FDA-Public Use
  Company Number: PHHY2009FR50352

PATIENT
  Sex: Female

DRUGS (9)
  1. INIPOMP [Suspect]
     Dosage: UNK
     Route: 048
     Dates: end: 20091002
  2. TEGRETOL [Suspect]
     Indication: FACIAL NEURALGIA
     Dosage: 400 MG
     Route: 048
     Dates: end: 20090929
  3. COAPROVEL [Suspect]
     Dosage: 150 MG/ 12.5 MG
     Route: 048
     Dates: end: 20091001
  4. LYRICA [Concomitant]
     Route: 048
  5. SOTALOL HCL [Concomitant]
     Dosage: 2 DF, UNK
  6. AMLODIPINE [Concomitant]
     Dosage: 2 DF, UNK
  7. ADVIL [Concomitant]
  8. STILNOX [Concomitant]
  9. SPASFON [Concomitant]

REACTIONS (4)
  - GAIT DISTURBANCE [None]
  - HYPONATRAEMIA [None]
  - NAUSEA [None]
  - VERTIGO [None]
